FAERS Safety Report 5267950-8 (Version None)
Quarter: 2007Q1

REPORT INFORMATION
  Report Type: 
  Country: None (occurrence: None)
  Receive Date: 20061213
  Receipt Date: 20030422
  Transmission Date: 20070707
  Serious: Yes (Hospitalization)
  Sender: FDA-Public Use
  Company Number: 2001UW16692

PATIENT
  Age: 69 Year
  Sex: Female
  Weight: 83.9154 kg

DRUGS (9)
  1. NOLVADEX [Suspect]
     Indication: BREAST CANCER
     Dosage: 20 MG QD PO
     Route: 048
     Dates: start: 19970523, end: 20011011
  2. TYLENOL W/ CODEINE NO. 3 [Concomitant]
  3. PAXIL [Concomitant]
  4. VITAMINS D [Concomitant]
  5. VITAMIN E [Concomitant]
  6. ATENOLOL [Concomitant]
  7. PIROXICAM [Concomitant]
  8. CALCIUM [Concomitant]
  9. HYDROCHLOROTHIAZIDE [Concomitant]

REACTIONS (2)
  - ENDOMETRIAL HYPERPLASIA [None]
  - UTERINE POLYP [None]
